FAERS Safety Report 6082160-2 (Version None)
Quarter: 2009Q1

REPORT INFORMATION
  Report Type: 
  Country: None (occurrence: None)
  Receive Date: 20090218
  Receipt Date: 20090213
  Transmission Date: 20090719
  Serious: Yes (Death, Hospitalization)
  Sender: FDA-Public Use
  Company Number: A0733497A

PATIENT
  Age: 59 Year
  Sex: Male
  Weight: 126.8 kg

DRUGS (9)
  1. AVANDAMET [Suspect]
     Indication: TYPE 2 DIABETES MELLITUS
     Route: 048
     Dates: start: 20030801, end: 20070501
  2. AVANDIA [Suspect]
     Indication: TYPE 2 DIABETES MELLITUS
     Route: 048
     Dates: start: 20050501, end: 20061001
  3. LASIX [Concomitant]
     Dates: end: 20070501
  4. ASPIRIN [Concomitant]
  5. INTEGRILIN [Concomitant]
  6. HEPARIN [Concomitant]
  7. ALTACE [Concomitant]
  8. ALBUTEROL [Concomitant]
  9. NITROGLYCERIN [Concomitant]

REACTIONS (9)
  - ATRIOVENTRICULAR BLOCK FIRST DEGREE [None]
  - CARDIAC ARREST [None]
  - CARDIAC FAILURE CONGESTIVE [None]
  - CORONARY ARTERY DISEASE [None]
  - CORONARY ARTERY OCCLUSION [None]
  - CORONARY ARTERY STENOSIS [None]
  - MYOCARDIAL INFARCTION [None]
  - SINUS BRADYCARDIA [None]
  - STRESS [None]
